FAERS Safety Report 12317772 (Version 1)
Quarter: 2016Q2

REPORT INFORMATION
  Report Type: Spontaneous
  Country: US (occurrence: US)
  Receive Date: 20160429
  Receipt Date: 20160429
  Transmission Date: 20160815
  Serious: No
  Sender: FDA-Public Use
  Company Number: US-BAUSCH-BL-2015-027144

PATIENT
  Sex: Male

DRUGS (2)
  1. ALREX [Suspect]
     Active Substance: LOTEPREDNOL ETABONATE
     Indication: LACRIMATION INCREASED
  2. ALREX [Suspect]
     Active Substance: LOTEPREDNOL ETABONATE
     Indication: EYE IRRITATION
     Route: 065
     Dates: start: 20150520

REACTIONS (3)
  - Lacrimation increased [Recovered/Resolved]
  - Eye discharge [Recovered/Resolved]
  - Condition aggravated [Recovered/Resolved]

NARRATIVE: CASE EVENT DATE: 20151111
